FAERS Safety Report 17203771 (Version 4)
Quarter: 2020Q2

REPORT INFORMATION
  Report Type: Report from Study
  Country: BG (occurrence: BG)
  Receive Date: 20191226
  Receipt Date: 20200414
  Transmission Date: 20200713
  Serious: Yes (Hospitalization)
  Sender: FDA-Public Use
  Company Number: BG-B.I. PHARMACEUTICALS,INC./RIDGEFIELD-2019-BI-121838

PATIENT
  Age: 69 Year
  Sex: Male

DRUGS (2)
  1. PRADAXA [Suspect]
     Active Substance: DABIGATRAN ETEXILATE MESYLATE
     Indication: PROSTATE CANCER
  2. PRADAXA [Suspect]
     Active Substance: DABIGATRAN ETEXILATE MESYLATE
     Indication: ATRIAL FIBRILLATION
     Route: 065

REACTIONS (4)
  - Cerebral infarction [Recovered/Resolved]
  - Off label use [Unknown]
  - Cerebral artery embolism [Recovering/Resolving]
  - Simple partial seizures [Recovering/Resolving]

NARRATIVE: CASE EVENT DATE: 201912
